FAERS Safety Report 16559600 (Version 2)
Quarter: 2019Q4

REPORT INFORMATION
  Report Type: Report from Study
  Country: DE (occurrence: DE)
  Receive Date: 20190711
  Receipt Date: 20191025
  Transmission Date: 20200122
  Serious: Yes (Hospitalization, Disabling)
  Sender: FDA-Public Use
  Company Number: DE-ROCHE-2353024

PATIENT
  Age: 68 Year
  Sex: Female

DRUGS (4)
  1. BISOPROLOL [Concomitant]
     Active Substance: BISOPROLOL
  2. IBUPROFEN. [Concomitant]
     Active Substance: IBUPROFEN
  3. TOCILIZUMAB. [Suspect]
     Active Substance: TOCILIZUMAB
     Indication: RHEUMATOID ARTHRITIS
     Route: 042
  4. RAMIPRIL. [Concomitant]
     Active Substance: RAMIPRIL

REACTIONS (2)
  - Rheumatoid nodule [Recovered/Resolved]
  - Synovectomy [Recovered/Resolved]

NARRATIVE: CASE EVENT DATE: 20190107
